FAERS Safety Report 6182309-7 (Version None)
Quarter: 2009Q2

REPORT INFORMATION
  Report Type: 
  Country: None (occurrence: None)
  Receive Date: 20090505
  Receipt Date: 20090505
  Transmission Date: 20091009
  Serious: Yes (Life-Threatening, Other)
  Sender: FDA-Public Use
  Company Number: None

PATIENT
  Age: 63 Year
  Sex: Female
  Weight: 95.2554 kg

DRUGS (3)
  1. WELCHOL [Suspect]
     Indication: BLOOD CHOLESTEROL INCREASED
     Dosage: 2 TABLETS B.I.D. PO
     Route: 048
     Dates: start: 20080313, end: 20080420
  2. WELCHOL [Suspect]
     Indication: BLOOD CHOLESTEROL INCREASED
     Dosage: 2 TABLETS B.I.D. PO
     Route: 048
     Dates: start: 20090317, end: 20090417
  3. WELCHOL [Suspect]

REACTIONS (3)
  - CONSTIPATION [None]
  - RECTAL TENESMUS [None]
  - UMBILICAL HERNIA [None]
